FAERS Safety Report 25772612 (Version 2)
Quarter: 2025Q4

REPORT INFORMATION
  Report Type: Spontaneous
  Country: US (occurrence: US)
  Receive Date: 20250908
  Receipt Date: 20251017
  Transmission Date: 20260117
  Serious: Yes (Other)
  Sender: AUROBINDO
  Company Number: US-MLMSERVICE-20250818-PI616558-00152-3

PATIENT
  Age: 68 Year
  Sex: Female
  Weight: 78.9 kg

DRUGS (4)
  1. FLUOROURACIL [Suspect]
     Active Substance: FLUOROURACIL
     Indication: Adenocarcinoma of colon
     Dosage: 1200 MG/M2, ONCE A DAY (3 CYCLE OUTPATIENT, 3 SUCCESSFUL INPATIENT-RECHALLENGED  CYCLES?OP; 5-FU BOL
     Route: 042
  2. OXALIPLATIN [Concomitant]
     Active Substance: OXALIPLATIN
     Indication: Adenocarcinoma of colon
     Dosage: UNK UNK, CYCLICAL (3 CYCLE OUTPATIENT, 3 SUCCESSFUL INPATIENT CYCLES?OP;)
     Route: 065
  3. LEUCOVORIN [Concomitant]
     Active Substance: LEUCOVORIN\LEUCOVORIN CALCIUM
     Indication: Adenocarcinoma of colon
     Dosage: UNK UNK, CYCLICAL (3 CYCLE OUTPATIENT, 3 SUCCESSFUL INPATIENT CYCLES OP)
     Route: 065
  4. ATENOLOL [Concomitant]
     Active Substance: ATENOLOL
     Indication: Product used for unknown indication
     Dosage: UNK
     Route: 065

REACTIONS (1)
  - Arteriospasm coronary [Recovered/Resolved]
